FAERS Safety Report 5295040-7 (Version None)
Quarter: 2007Q1

REPORT INFORMATION
  Report Type: 
  Country: None (occurrence: None)
  Receive Date: 20070201
  Receipt Date: 20061019
  Transmission Date: 20070707
  Serious: No
  Sender: FDA-Public Use
  Company Number: 2006PV023605

PATIENT
  Age: 64 Year
  Sex: Female
  Weight: 106.5953 kg

DRUGS (6)
  1. BYETTA [Suspect]
     Indication: DIABETES MELLITUS
     Dosage: SEE IMAGE
     Route: 058
     Dates: start: 20050101, end: 20050101
  2. BYETTA [Suspect]
     Indication: DIABETES MELLITUS
     Dosage: SEE IMAGE
     Route: 058
     Dates: start: 20050101, end: 20060101
  3. BYETTA [Suspect]
     Indication: DIABETES MELLITUS
     Dosage: SEE IMAGE
     Route: 058
     Dates: start: 20060101, end: 20060101
  4. BYETTA [Suspect]
     Indication: DIABETES MELLITUS
     Dosage: SEE IMAGE
     Route: 058
     Dates: start: 20060101
  5. INFLUENZA VACCINE [Suspect]
     Indication: INFLUENZA IMMUNISATION
     Dosage: X1; SC
     Route: 058
     Dates: start: 20061011, end: 20061011
  6. INSULIN [Concomitant]

REACTIONS (2)
  - PYREXIA [None]
  - VOMITING [None]
